FAERS Safety Report 5860578-8 (Version None)
Quarter: 2008Q3

REPORT INFORMATION
  Report Type: 
  Country: None (occurrence: None)
  Receive Date: 20080827
  Receipt Date: 20070913
  Transmission Date: 20090109
  Serious: No
  Sender: FDA-Public Use
  Company Number: US-ABBOTT-07P-163-0416914-00

PATIENT
  Sex: Female
  Weight: 54.48 kg

DRUGS (6)
  1. COATED PDS [Suspect]
     Indication: BLOOD CHOLESTEROL INCREASED
     Route: 048
     Dates: start: 20070802
  2. EZETIMIBE [Concomitant]
     Indication: BLOOD CHOLESTEROL INCREASED
     Route: 048
  3. FLAXSEED OIL AND OMEGA 3-FATTY ACID [Concomitant]
     Indication: DRUG USE FOR UNKNOWN INDICATION
     Route: 048
  4. AMOLDYBENAZ [Concomitant]
     Indication: THYROID DISORDER
  5. LEVOTHYROXINE [Concomitant]
     Indication: THYROID DISORDER
  6. ROPINIROLE HYDROCHLORIDE [Concomitant]
     Indication: RESTLESS LEGS SYNDROME

REACTIONS (2)
  - DIARRHOEA [None]
  - VULVOVAGINAL BURNING SENSATION [None]
